FAERS Safety Report 23776203 (Version 1)
Quarter: 2024Q2

REPORT INFORMATION
  Report Type: Report from Study
  Country: UY (occurrence: UY)
  Receive Date: 20240424
  Receipt Date: 20240424
  Transmission Date: 20240716
  Serious: Yes (Hospitalization, Other)
  Sender: FDA-Public Use
  Company Number: UY-ABBVIE-5730579

PATIENT
  Age: 61 Year
  Sex: Female

DRUGS (1)
  1. RINVOQ [Suspect]
     Active Substance: UPADACITINIB
     Indication: Rheumatoid arthritis
     Dosage: STRENGTH 15 MILLIGRAM
     Route: 048
     Dates: start: 20211018

REACTIONS (6)
  - Ischaemic stroke [Unknown]
  - Visual acuity reduced [Recovering/Resolving]
  - Intervertebral disc protrusion [Unknown]
  - Headache [Not Recovered/Not Resolved]
  - Ocular discomfort [Unknown]
  - Cervical cord compression [Unknown]

NARRATIVE: CASE EVENT DATE: 20240227
